FAERS Safety Report 8333553-1 (Version None)
Quarter: 2012Q1

REPORT INFORMATION
  Report Type: 
  Country: None (occurrence: None)
  Receive Date: 20120328
  Receipt Date: 20100730
  Transmission Date: 20120608
  Serious: Yes (Other)
  Sender: FDA-Public Use
  Company Number: PHHY2010US24997

PATIENT
  Age: 86 Year
  Sex: Female

DRUGS (1)
  1. VALTURNA [Suspect]
     Dosage: 150/160MG
     Dates: start: 20100326

REACTIONS (7)
  - FEELING ABNORMAL [None]
  - DRUG INEFFECTIVE [None]
  - MALAISE [None]
  - HYPOTENSION [None]
  - WRONG TECHNIQUE IN DRUG USAGE PROCESS [None]
  - DIZZINESS [None]
  - HYPERTENSION [None]
